FAERS Safety Report 10511728 (Version 1)
Quarter: 2014Q4

REPORT INFORMATION
  Report Type: Report from Study
  Country: US (occurrence: US)
  Receive Date: 20141010
  Receipt Date: 20141010
  Transmission Date: 20150528
  Serious: Yes (Other)
  Sender: FDA-Public Use
  Company Number: US-BAYER-2014-146680

PATIENT
  Age: 60 Year
  Sex: Male

DRUGS (2)
  1. LORAZEPAM. [Interacting]
     Active Substance: LORAZEPAM
  2. NEXAVAR [Suspect]
     Active Substance: SORAFENIB
     Indication: HEPATIC CANCER
     Dosage: 800 MG, (4 X 200 MG) QD
     Route: 048
     Dates: start: 20140218, end: 2014

REACTIONS (2)
  - Dementia [None]
  - Drug interaction [None]

NARRATIVE: CASE EVENT DATE: 20140930
